FAERS Safety Report 8890119 (Version 2)
Quarter: 2012Q4

REPORT INFORMATION
  Report Type: 
  Country: BR (occurrence: BR)
  Receive Date: 20121107
  Receipt Date: 20121112
  Transmission Date: 20130627
  Serious: Yes (Congenital Anomaly, Other)
  Sender: FDA-Public Use
  Company Number: BR-TEVA-367123ISR

PATIENT
  Age: 5 Month
  Sex: Male

DRUGS (1)
  1. POSTINOR UNO [Suspect]
     Indication: PRODUCT USED FOR UNKNOWN INDICATION
     Route: 064
     Dates: start: 20110815, end: 20110815

REACTIONS (2)
  - Congenital diaphragmatic hernia [Not Recovered/Not Resolved]
  - Foetal exposure during pregnancy [Unknown]
